FAERS Safety Report 13561777 (Version 1)
Quarter: 2017Q2

REPORT INFORMATION
  Report Type: Spontaneous
  Country: ES (occurrence: ES)
  Receive Date: 20170518
  Receipt Date: 20170518
  Transmission Date: 20170830
  Serious: Yes (Hospitalization, Other)
  Sender: FDA-Public Use
  Company Number: ES-ALLERGAN-1648914

PATIENT
  Age: 77 Year
  Sex: Male

DRUGS (1)
  1. TRIPTORELIN PAMOATE UNK [Suspect]
     Active Substance: TRIPTORELIN PAMOATE
     Indication: PROSTATE CANCER
     Dosage: 22.5 MG, SINGLE, EVERY SIX MONTHS
     Route: 030

REACTIONS (9)
  - Hypoprolactinaemia [Unknown]
  - Adrenocorticotropic hormone deficiency [Unknown]
  - Diplopia [Unknown]
  - Nausea [Unknown]
  - Vomiting [Unknown]
  - Secondary hypogonadism [Unknown]
  - Pituitary haemorrhage [Unknown]
  - Headache [Unknown]
  - Eyelid ptosis [Unknown]
